FAERS Safety Report 17469135 (Version 1)
Quarter: 2020Q1

REPORT INFORMATION
  Report Type: Spontaneous
  Country: US (occurrence: US)
  Receive Date: 20200227
  Receipt Date: 20200227
  Transmission Date: 20200409
  Serious: No
  Sender: FDA-Public Use
  Company Number: US-SA-2020SA051215

PATIENT
  Age: 13 Year
  Sex: Female
  Weight: 102 kg

DRUGS (2)
  1. RITUXAN [Suspect]
     Active Substance: RITUXIMAB
     Route: 065
  2. CABLIVI [Suspect]
     Active Substance: CAPLACIZUMAB-YHDP
     Indication: THROMBOTIC MICROANGIOPATHY
     Dosage: 14 MG, QD
     Route: 058
     Dates: start: 20200214

REACTIONS (3)
  - Product use issue [Unknown]
  - Unevaluable event [Unknown]
  - Epistaxis [Unknown]

NARRATIVE: CASE EVENT DATE: 202002
